FAERS Safety Report 8554206-0 (Version None)
Quarter: 2012Q3

REPORT INFORMATION
  Report Type: 
  Country: None (occurrence: None)
  Receive Date: 20120731
  Receipt Date: 20120720
  Transmission Date: 20120928
  Serious: Yes (Other)
  Sender: FDA-Public Use
  Company Number: GB-ELI_LILLY_AND_COMPANY-GB201112003677

PATIENT
  Age: 65 Year
  Sex: Male

DRUGS (4)
  1. VITAMIN B-12 [Concomitant]
     Dosage: 1000 UG, UNK
     Dates: start: 20110623
  2. DEXAMETHASONE [Concomitant]
     Dosage: 4 MG, UNK
     Route: 048
     Dates: start: 20110629
  3. ALIMTA [Suspect]
     Indication: MESOTHELIOMA
     Dosage: UNK
     Route: 042
     Dates: start: 20110630
  4. FOLIC ACID [Concomitant]
     Indication: SUPPLEMENTATION THERAPY
     Dosage: 400 UG, UNK
     Route: 048
     Dates: start: 20110625

REACTIONS (4)
  - EYE DISORDER [None]
  - EYE PRURITUS [None]
  - HYPERSENSITIVITY [None]
  - RASH GENERALISED [None]
